FAERS Safety Report 4550977-9 (Version None)
Quarter: 2004Q4

REPORT INFORMATION
  Report Type: 
  Country: None (occurrence: None)
  Receive Date: 20041217
  Receipt Date: 20040823
  Transmission Date: 20050328
  Serious: No
  Sender: FDA-Public Use
  Company Number: 2004-BP-07152BP

PATIENT
  Age: 63 Year
  Sex: Male

DRUGS (8)
  1. SPIRIVA [Suspect]
     Indication: CHRONIC OBSTRUCTIVE AIRWAYS DISEASE
     Dosage: 18 MCG (18 MCG) IH
     Route: 055
     Dates: start: 20040823, end: 20040825
  2. COMBIVENT [Suspect]
     Indication: CHRONIC OBSTRUCTIVE AIRWAYS DISEASE
     Dosage: (NR 4-6 PUFFS DAILY) IH
     Route: 055
     Dates: start: 20040101
  3. VITAMIN B12 (CYANCOBALAMIN) [Concomitant]
  4. VITAMIN E [Concomitant]
  5. FOLIC ACID [Concomitant]
  6. ADVAIR (SERETIDE MITE) [Concomitant]
  7. SINGULAIR [Concomitant]
  8. NASONEX [Concomitant]

REACTIONS (4)
  - ASTHENIA [None]
  - DIFFICULTY IN WALKING [None]
  - DIZZINESS [None]
  - FATIGUE [None]
